FAERS Safety Report 5595170-6 (Version None)
Quarter: 2008Q1

REPORT INFORMATION
  Report Type: 
  Country: None (occurrence: None)
  Receive Date: 20080117
  Receipt Date: 20080109
  Transmission Date: 20080703
  Serious: Yes (Death)
  Sender: FDA-Public Use
  Company Number: US-PFIZER INC-2008003717

PATIENT
  Age: 33 Year
  Sex: Female

DRUGS (6)
  1. DOXEPIN HCL [Suspect]
  2. NORTRIPTYLINE [Suspect]
  3. ACETAMINOPHEN [Suspect]
  4. BARBITURATES [Suspect]
  5. BENZODIAZEPINE DERIVATIVES [Suspect]
  6. OPIOIDS [Suspect]

REACTIONS (1)
  - COMPLETED SUICIDE [None]
